FAERS Safety Report 9395607 (Version 2)
Quarter: 2013Q3

REPORT INFORMATION
  Report Type: Report from Study
  Country: JP (occurrence: JP)
  Receive Date: 20130711
  Receipt Date: 20130802
  Transmission Date: 20140515
  Serious: Yes (Other)
  Sender: FDA-Public Use
  Company Number: JP-SANOFI-AVENTIS-2013SA069890

PATIENT
  Sex: 0

DRUGS (9)
  1. FLUOROURACIL [Suspect]
     Indication: OESOPHAGEAL CARCINOMA
     Dosage: 400 MG/M2 ON DAYS 1-5 EVERY 2 WEEKS
     Route: 042
  2. FLUOROURACIL [Suspect]
     Indication: OESOPHAGEAL CARCINOMA
     Dosage: 600 MG/M2 ON DAYS 1-5 EVERY 4 WEEKS
     Route: 065
  3. CISPLATIN [Suspect]
     Indication: OESOPHAGEAL CARCINOMA
     Dosage: 40 MG/M2 ON DAY 1 EVERY 2 WEEKS
     Route: 042
  4. CISPLATIN [Suspect]
     Indication: OESOPHAGEAL CARCINOMA
     Dosage: 60 MG/M2 ON DAY 1 EVERY 4 WEEKS
     Route: 065
  5. DOCETAXEL [Suspect]
     Indication: OESOPHAGEAL CARCINOMA
     Dosage: 40 MG/M2 EVERY 4 WEEKS
     Route: 065
  6. DOCETAXEL [Suspect]
     Indication: OESOPHAGEAL CARCINOMA
     Dosage: 35 MG/M2 EVERY 2 WEEKS
     Route: 042
  7. THERAPEUTIC RADIOPHARMACEUTICALS [Suspect]
     Indication: OESOPHAGEAL CARCINOMA
     Route: 065
  8. THERAPEUTIC RADIOPHARMACEUTICALS [Suspect]
     Indication: OESOPHAGEAL CARCINOMA
     Dosage: TOTAL RADIOTHERAPY DOSE WAS 50.4 GY
     Route: 065
  9. THERAPEUTIC RADIOPHARMACEUTICALS [Suspect]
     Indication: OESOPHAGEAL CARCINOMA
     Dosage: TOTAL RADIOTHERAPY DOSE WAS 61.2 GY
     Route: 065

REACTIONS (1)
  - Aortic aneurysm [Unknown]
